FAERS Safety Report 23581173 (Version 1)
Quarter: 2024Q1

REPORT INFORMATION
  Report Type: Spontaneous
  Country: US (occurrence: None)
  Receive Date: 20240229
  Receipt Date: 20240229
  Transmission Date: 20240409
  Serious: Yes (Other)
  Sender: FDA-Public Use
  Company Number: None

PATIENT
  Age: 35 Year
  Sex: Female
  Weight: 60.75 kg

DRUGS (1)
  1. MONTELUKAST [Suspect]
     Active Substance: MONTELUKAST SODIUM
     Dosage: OTHER QUANTITY : 1 TABLET(S);?FREQUENCY : AT BEDTIME;?
     Dates: start: 20240124, end: 20240226

REACTIONS (7)
  - Psychiatric symptom [None]
  - Abnormal dreams [None]
  - Insomnia [None]
  - Anxiety [None]
  - Withdrawal syndrome [None]
  - Tearfulness [None]
  - Therapy interrupted [None]

NARRATIVE: CASE EVENT DATE: 20240229
